FAERS Safety Report 18461037 (Version 1)
Quarter: 2020Q4

REPORT INFORMATION
  Report Type: Spontaneous
  Country: CA (occurrence: CA)
  Receive Date: 20201104
  Receipt Date: 20201104
  Transmission Date: 20210114
  Serious: Yes (Other)
  Sender: FDA-Public Use
  Company Number: CA-LUPIN PHARMACEUTICALS INC.-2020-08493

PATIENT
  Age: 35 Year
  Sex: Male

DRUGS (2)
  1. IMATINIB MESYLATE. [Suspect]
     Active Substance: IMATINIB MESYLATE
     Indication: MYELOPROLIFERATIVE NEOPLASM
  2. IMATINIB MESYLATE. [Suspect]
     Active Substance: IMATINIB MESYLATE
     Indication: HYPEREOSINOPHILIC SYNDROME
     Dosage: 400 MILLIGRAM, QD (LOW-DOSE)
     Route: 065

REACTIONS (3)
  - Myelitis transverse [Recovered/Resolved]
  - Demyelination [Recovered/Resolved]
  - Optic neuritis [Recovered/Resolved]
